FAERS Safety Report 5586344-9 (Version None)
Quarter: 2008Q1

REPORT INFORMATION
  Report Type: 
  Country: None (occurrence: None)
  Receive Date: 20080110
  Receipt Date: 20080103
  Transmission Date: 20080703
  Serious: No
  Sender: FDA-Public Use
  Company Number: PHHY2007KR00722

PATIENT
  Age: 50 Year
  Sex: Female

DRUGS (3)
  1. DIOVAN [Suspect]
     Indication: HYPERTENSION
     Dosage: 80 MG, QD
     Route: 048
     Dates: start: 20040528, end: 20041129
  2. LOSARTAN POTASSIUM [Concomitant]
     Dosage: 7 MG, UNK
  3. AMLODIPINE BESYLATE [Concomitant]
     Dosage: 10 MG, UNK

REACTIONS (2)
  - COUGH [None]
  - THROAT IRRITATION [None]
